FAERS Safety Report 8434283-8 (Version None)
Quarter: 2012Q2

REPORT INFORMATION
  Report Type: 
  Country: None (occurrence: None)
  Receive Date: 20120613
  Receipt Date: 20120611
  Transmission Date: 20120825
  Serious: Yes (Hospitalization)
  Sender: FDA-Public Use
  Company Number: US-GILEAD-2012-0056237

PATIENT
  Sex: Female

DRUGS (2)
  1. FLOLAN [Concomitant]
  2. LETAIRIS [Suspect]
     Indication: PULMONARY HYPERTENSION
     Dosage: 10 MG, UNK
     Route: 048
     Dates: start: 20110224

REACTIONS (3)
  - MEDICAL DEVICE COMPLICATION [None]
  - DEVICE RELATED INFECTION [None]
  - UNEVALUABLE EVENT [None]
